FAERS Safety Report 7111269-7 (Version None)
Quarter: 2010Q4

REPORT INFORMATION
  Report Type: 
  Country: None (occurrence: None)
  Receive Date: 20101112
  Receipt Date: 20101104
  Transmission Date: 20110411
  Serious: Yes (Other)
  Sender: FDA-Public Use
  Company Number: JP-ACCORD-006559

PATIENT
  Age: 40 Year
  Sex: Female

DRUGS (3)
  1. MYCOPHENOLATE MOFETIL [Suspect]
     Indication: RENAL TRANSPLANT
  2. TACROLIMUS [Suspect]
     Indication: RENAL TRANSPLANT
  3. METHYLPREDNISOLONE [Concomitant]

REACTIONS (2)
  - KIDNEY TRANSPLANT REJECTION [None]
  - TREATMENT NONCOMPLIANCE [None]
